FAERS Safety Report 12874366 (Version 2)
Quarter: 2019Q1

REPORT INFORMATION
  Report Type: Spontaneous
  Country: IE (occurrence: IE)
  Receive Date: 20161021
  Receipt Date: 20190227
  Transmission Date: 20190417
  Serious: Yes (Death, Hospitalization, Other)
  Sender: FDA-Public Use
  Company Number: IE-BRISTOL-MYERS SQUIBB COMPANY-BMS-2016-086826

PATIENT
  Age: 79 Year
  Sex: Female
  Weight: 68 kg

DRUGS (4)
  1. NEXIUM [Concomitant]
     Active Substance: ESOMEPRAZOLE MAGNESIUM
     Indication: DYSPEPSIA
     Route: 048
  2. OPDIVO [Suspect]
     Active Substance: NIVOLUMAB
     Indication: LUNG NEOPLASM MALIGNANT
     Dosage: 3MG/KG, FIRST DOSE
     Route: 042
     Dates: start: 20160616, end: 20160616
  3. LYRICA [Concomitant]
     Active Substance: PREGABALIN
     Indication: NEURALGIA
     Dosage: 75 MG, BID
     Route: 048
  4. LYRICA [Concomitant]
     Active Substance: PREGABALIN
     Indication: NEURALGIA
     Route: 048

REACTIONS (13)
  - Acute myocardial infarction [Fatal]
  - Myalgia [Unknown]
  - Lung consolidation [Unknown]
  - Respiratory failure [Unknown]
  - Myositis [Fatal]
  - Hepatitis [Unknown]
  - Pleural effusion [Unknown]
  - Lower respiratory tract infection [Unknown]
  - Rhabdomyolysis [Fatal]
  - Myocarditis [Unknown]
  - Liver disorder [Unknown]
  - Pulmonary sepsis [Fatal]
  - Fluid overload [Unknown]

NARRATIVE: CASE EVENT DATE: 20160630
